FAERS Safety Report 15204186 (Version 1)
Quarter: 2018Q3

REPORT INFORMATION
  Report Type: Spontaneous
  Country: DE (occurrence: DE)
  Receive Date: 20180726
  Receipt Date: 20180726
  Transmission Date: 20181010
  Serious: Yes (Other)
  Sender: FDA-Public Use
  Company Number: DE-ALLERGAN-1836795US

PATIENT
  Sex: Female
  Weight: 58 kg

DRUGS (2)
  1. MESALAZINE UNK [Suspect]
     Active Substance: MESALAMINE
     Indication: RECTAL ULCER
     Dosage: 1 G, UNKNOWN
     Route: 054
     Dates: start: 20180514, end: 20180530
  2. MESALAZINE UNK [Suspect]
     Active Substance: MESALAMINE
     Indication: RECTAL ULCER
     Dosage: 3 G, QD
     Route: 048
     Dates: start: 20180601, end: 20180601

REACTIONS (6)
  - Defaecation urgency [Recovered/Resolved]
  - Fatigue [Recovered/Resolved]
  - Headache [Recovered/Resolved]
  - Off label use [Unknown]
  - Pyrexia [Recovered/Resolved with Sequelae]
  - Pain in extremity [Recovered/Resolved]

NARRATIVE: CASE EVENT DATE: 20180528
